FAERS Safety Report 25953619 (Version 1)
Quarter: 2025Q4

REPORT INFORMATION
  Report Type: Spontaneous
  Country: US (occurrence: None)
  Receive Date: 20251022
  Receipt Date: 20251022
  Transmission Date: 20260117
  Serious: Yes (Hospitalization)
  Sender: FDA-CTU
  Company Number: None

PATIENT
  Sex: Female
  Weight: 155.25 kg

DRUGS (1)
  1. KESIMPTA [Suspect]
     Active Substance: OFATUMUMAB
     Indication: Multiple sclerosis
     Dosage: 20 MG/ML ONCE A MONTH SUBCUTNEOUS?
     Route: 058
     Dates: start: 20250515

REACTIONS (3)
  - Gait disturbance [None]
  - Condition aggravated [None]
  - Multiple sclerosis [None]
